FAERS Safety Report 4598437-3 (Version None)
Quarter: 2005Q1

REPORT INFORMATION
  Report Type: 
  Country: None (occurrence: None)
  Receive Date: 20050304
  Receipt Date: 20050221
  Transmission Date: 20050727
  Serious: Yes (Death)
  Sender: FDA-Public Use
  Company Number: JP-JNJFOC-20040601402

PATIENT
  Sex: Male

DRUGS (3)
  1. DUROTEP [Suspect]
     Indication: CANCER PAIN
     Route: 062
  2. PANTAZOCINE [Concomitant]
     Indication: CANCER PAIN
     Route: 030
  3. HYDROXYZINE HYDROCHLORIDE [Concomitant]
     Indication: CANCER PAIN
     Route: 030

REACTIONS (2)
  - HEPATIC FAILURE [None]
  - HEPATIC NEOPLASM MALIGNANT [None]
